FAERS Safety Report 5289372-6 (Version None)
Quarter: 2007Q2

REPORT INFORMATION
  Report Type: 
  Country: None (occurrence: None)
  Receive Date: 20070406
  Receipt Date: 20070329
  Transmission Date: 20071010
  Serious: Yes (Other)
  Sender: FDA-Public Use
  Company Number: JP-BRISTOL-MYERS SQUIBB COMPANY-13740071

PATIENT
  Age: 81 Year
  Sex: Male

DRUGS (2)
  1. GATIFLO TABS 100 MG [Suspect]
     Indication: LUNG INFECTION
     Route: 048
     Dates: start: 20070313, end: 20070320
  2. STEROIDS [Concomitant]
     Route: 055

REACTIONS (1)
  - BLOOD GLUCOSE DECREASED [None]
